FAERS Safety Report 8843458 (Version 2)
Quarter: 2014Q2

REPORT INFORMATION
  Report Type: Spontaneous
  Country: US (occurrence: US)
  Receive Date: 20121016
  Receipt Date: 20140407
  Transmission Date: 20141212
  Serious: Yes (Hospitalization)
  Sender: FDA-Public Use
  Company Number: US-CELGENEUS-163-21880-12101625

PATIENT
  Age: 75 Year
  Sex: Female
  Weight: 60.06 kg

DRUGS (51)
  1. REVLIMID [Suspect]
     Indication: PLASMA CELL MYELOMA
     Dosage: 25 MILLIGRAM
     Route: 048
     Dates: start: 20110419
  2. REVLIMID [Suspect]
     Dosage: 25 MILLIGRAM
     Route: 048
     Dates: start: 20110517
  3. REVLIMID [Suspect]
     Dosage: 10 MILLIGRAM
     Route: 048
     Dates: start: 201112
  4. REVLIMID [Suspect]
     Dosage: 5 - 10MG
     Route: 048
     Dates: start: 20121107
  5. REVLIMID [Suspect]
     Dosage: 10 MILLIGRAM
     Route: 048
     Dates: start: 201305
  6. RESTORIL [Concomitant]
     Indication: INSOMNIA
     Dosage: 15 MILLIGRAM
     Route: 048
  7. PEPCID [Concomitant]
     Indication: PRODUCT USED FOR UNKNOWN INDICATION
     Dosage: 40 MILLIGRAM
     Route: 048
  8. LYRICA [Concomitant]
     Indication: PRODUCT USED FOR UNKNOWN INDICATION
     Dosage: 150 MILLIGRAM
     Route: 048
  9. VALTREX [Concomitant]
     Indication: PRODUCT USED FOR UNKNOWN INDICATION
     Dosage: 500 MILLIGRAM
     Route: 048
  10. BENADRYL [Concomitant]
     Indication: PROPHYLAXIS
     Route: 065
     Dates: start: 20110507
  11. BENADRYL [Concomitant]
     Indication: MULTIPLE ALLERGIES
     Route: 041
  12. BENADRYL [Concomitant]
     Dosage: 100 MILLIGRAM
     Route: 048
  13. BACTRIM DS [Concomitant]
     Indication: PRODUCT USED FOR UNKNOWN INDICATION
     Route: 065
  14. CALCIUM + VITAMIN D [Concomitant]
     Indication: PRODUCT USED FOR UNKNOWN INDICATION
     Route: 065
  15. STOOL SOFTENER [Concomitant]
     Indication: PRODUCT USED FOR UNKNOWN INDICATION
     Route: 065
  16. LORTAB [Concomitant]
     Indication: PRODUCT USED FOR UNKNOWN INDICATION
     Route: 065
  17. PILOCARPINE [Concomitant]
     Indication: PRODUCT USED FOR UNKNOWN INDICATION
     Dosage: 22.5 MILLIGRAM
     Route: 048
  18. VELCADE [Concomitant]
     Indication: PRODUCT USED FOR UNKNOWN INDICATION
     Route: 065
     Dates: start: 20110419
  19. DEXAMETHASONE [Concomitant]
     Indication: PRODUCT USED FOR UNKNOWN INDICATION
     Route: 065
     Dates: start: 20110419
  20. DEXAMETHASONE [Concomitant]
     Route: 065
     Dates: start: 20110829
  21. DEXAMETHASONE [Concomitant]
     Route: 065
     Dates: start: 201308
  22. MELPHALAN [Concomitant]
     Indication: PRODUCT USED FOR UNKNOWN INDICATION
     Route: 065
     Dates: start: 20110810
  23. KEFLEX [Concomitant]
     Indication: PRODUCT USED FOR UNKNOWN INDICATION
     Route: 065
  24. SOLUMEDROL [Concomitant]
     Indication: PRODUCT USED FOR UNKNOWN INDICATION
     Route: 041
     Dates: start: 20110507
  25. SOLUMEDROL [Concomitant]
     Route: 041
     Dates: start: 20110823, end: 20110823
  26. NEUPOGEN [Concomitant]
     Indication: PRODUCT USED FOR UNKNOWN INDICATION
     Route: 065
     Dates: start: 20110728, end: 20110823
  27. MOZOBIL [Concomitant]
     Indication: PRODUCT USED FOR UNKNOWN INDICATION
     Route: 065
     Dates: start: 20110801
  28. LASIX [Concomitant]
     Indication: OEDEMA PERIPHERAL
     Route: 065
     Dates: start: 201108
  29. LASIX [Concomitant]
     Route: 041
  30. CEFEPIME [Concomitant]
     Indication: PRODUCT USED FOR UNKNOWN INDICATION
     Route: 065
  31. AZACTAM [Concomitant]
     Indication: PRODUCT USED FOR UNKNOWN INDICATION
     Route: 065
  32. ZOFRAN [Concomitant]
     Indication: PRODUCT USED FOR UNKNOWN INDICATION
     Route: 065
     Dates: start: 20110829
  33. ASA [Concomitant]
     Indication: PROPHYLAXIS
     Route: 065
  34. DILAUDID [Concomitant]
     Indication: PAIN MANAGEMENT
     Route: 041
  35. MORPHINE [Concomitant]
     Indication: PAIN MANAGEMENT
     Route: 048
  36. TYLENOL [Concomitant]
     Indication: PAIN MANAGEMENT
     Route: 065
  37. MOTRIN [Concomitant]
     Indication: PAIN MANAGEMENT
     Route: 065
  38. HYDROCODONE [Concomitant]
     Indication: PAIN MANAGEMENT
     Route: 065
  39. ZOMETA [Concomitant]
     Indication: PRODUCT USED FOR UNKNOWN INDICATION
     Route: 041
     Dates: start: 20110701
  40. ZOMETA [Concomitant]
     Route: 041
     Dates: start: 20121022
  41. ZOMETA [Concomitant]
     Route: 041
     Dates: start: 20130304, end: 20130723
  42. K-DUR [Concomitant]
     Indication: PRODUCT USED FOR UNKNOWN INDICATION
     Route: 065
  43. BIOTIN [Concomitant]
     Indication: NEUROPATHY PERIPHERAL
     Dosage: 1000 MILLIGRAM
     Route: 048
  44. FLUCONAZOLE [Concomitant]
     Indication: PRODUCT USED FOR UNKNOWN INDICATION
     Dosage: 200 MILLIGRAM
     Route: 065
  45. PREPARATION H [Concomitant]
     Indication: ANORECTAL DISCOMFORT
     Dosage: 1 APPLICATION
     Route: 054
  46. PREPARATION H [Concomitant]
     Indication: HAEMORRHOIDS
  47. MULTIVITAMINS [Concomitant]
     Indication: ANORECTAL DISCOMFORT
     Dosage: 1 CAPSULE
     Route: 048
  48. MULTIVITAMINS [Concomitant]
     Indication: HAEMORRHOIDS
  49. COLACE [Concomitant]
     Indication: CONSTIPATION
     Dosage: 200 MILLIGRAM
     Route: 048
  50. MIRALAX [Concomitant]
     Indication: CONSTIPATION
     Dosage: 17 GRAM
     Route: 048
  51. DIPHENHYDRAMINE HCL [Concomitant]
     Indication: ORAL PAIN
     Dosage: 120 MILLILITER
     Route: 048

REACTIONS (1)
  - Pancreatitis [Recovered/Resolved]
